FAERS Safety Report 5408581-6 (Version None)
Quarter: 2007Q3

REPORT INFORMATION
  Report Type: 
  Country: None (occurrence: None)
  Receive Date: 20070808
  Receipt Date: 20070727
  Transmission Date: 20080115
  Serious: Yes (Hospitalization)
  Sender: FDA-Public Use
  Company Number: IT-PFIZER INC-2007062503

PATIENT
  Age: 80 Year
  Sex: Male

DRUGS (1)
  1. UNIQUIN [Suspect]
     Dosage: DAILY DOSE:400MG
     Route: 048
     Dates: start: 20060124, end: 20060322

REACTIONS (3)
  - OEDEMA [None]
  - PRURITUS [None]
  - RASH ERYTHEMATOUS [None]
